FAERS Safety Report 16040320 (Version 1)
Quarter: 2019Q1

REPORT INFORMATION
  Report Type: Spontaneous
  Country: CA (occurrence: CA)
  Receive Date: 20190306
  Receipt Date: 20190306
  Transmission Date: 20190418
  Serious: Yes (Life-Threatening, Hospitalization, Disabling)
  Sender: FDA-Public Use
  Company Number: PHHY2019CA051167

PATIENT
  Age: 15 Year
  Sex: Female
  Weight: 52 kg

DRUGS (5)
  1. EXJADE [Suspect]
     Active Substance: DEFERASIROX
     Indication: TRANSFUSION RELATED COMPLICATION
  2. ALYSENA [Concomitant]
     Indication: PRODUCT USED FOR UNKNOWN INDICATION
     Route: 065
  3. EXJADE [Suspect]
     Active Substance: DEFERASIROX
     Indication: RED BLOOD CELL ABNORMALITY
  4. PENICILLIN VK [Concomitant]
     Active Substance: PENICILLIN V POTASSIUM
     Indication: PRODUCT USED FOR UNKNOWN INDICATION
     Route: 065
  5. EXJADE [Suspect]
     Active Substance: DEFERASIROX
     Indication: HAEMOSIDEROSIS
     Dosage: 1500 MG, QD
     Route: 048

REACTIONS (7)
  - Hypokalaemia [Recovered/Resolved]
  - Tetany [Recovered/Resolved]
  - Gait inability [Recovered/Resolved]
  - Rhabdomyolysis [Recovered/Resolved]
  - Fanconi syndrome acquired [Recovered/Resolved]
  - Hypocalcaemia [Recovered/Resolved]
  - Hypophosphataemia [Recovered/Resolved]
